FAERS Safety Report 5289228-9 (Version None)
Quarter: 2007Q1

REPORT INFORMATION
  Report Type: 
  Country: None (occurrence: None)
  Receive Date: 20070124
  Receipt Date: 20061128
  Transmission Date: 20070707
  Serious: Yes (Hospitalization, Other)
  Sender: FDA-Public Use
  Company Number: HQWYE744129NOV06

PATIENT
  Age: 68 Year
  Sex: Male
  Weight: 108.96 kg

DRUGS (2)
  1. CORDARONE [Suspect]
     Indication: HEART RATE IRREGULAR
     Dosage: SEE IMAGE
     Route: 048
     Dates: start: 20061106, end: 20061108
  2. CORDARONE [Suspect]
     Indication: HEART RATE IRREGULAR
     Dosage: SEE IMAGE
     Route: 048
     Dates: start: 20061109, end: 20061113

REACTIONS (1)
  - BRADYCARDIA [None]
